FAERS Safety Report 22622831 (Version 1)
Quarter: 2023Q2

REPORT INFORMATION
  Report Type: Report from Study
  Country: US (occurrence: None)
  Receive Date: 20230621
  Receipt Date: 20230621
  Transmission Date: 20230722
  Serious: Yes (Other)
  Sender: FDA-Public Use
  Company Number: 2023A141355

PATIENT
  Sex: Male

DRUGS (1)
  1. FASENRA [Suspect]
     Active Substance: BENRALIZUMAB
     Indication: Asthma
     Dosage: EVERY 4 WEEKS FOR FIRST 3 DOSES, THEN EVERY 8 WEEKS30.0MG/ML UNKNOWN
     Route: 058
     Dates: start: 20230414

REACTIONS (2)
  - Pancreatitis [Unknown]
  - Drug ineffective [Unknown]
